FAERS Safety Report 8222583-6 (Version None)
Quarter: 2012Q1

REPORT INFORMATION
  Report Type: 
  Country: None (occurrence: None)
  Receive Date: 20120320
  Receipt Date: 20120317
  Transmission Date: 20120608
  Serious: No
  Sender: FDA-Public Use
  Company Number: US-TEVA-328781USA

PATIENT
  Sex: Female
  Weight: 65.83 kg

DRUGS (2)
  1. PLAN B ONE-STEP [Suspect]
     Indication: POST COITAL CONTRACEPTION
     Dosage: 1.5 MILLIGRAM;
     Route: 048
     Dates: start: 20120115, end: 20120115
  2. MICROGESTIN FE 1/20 [Concomitant]
     Indication: CONTRACEPTION

REACTIONS (3)
  - VAGINAL DISCHARGE [None]
  - MENSTRUATION IRREGULAR [None]
  - ABDOMINAL PAIN [None]
